FAERS Safety Report 6419515-X (Version None)
Quarter: 2009Q4

REPORT INFORMATION
  Report Type: 
  Country: None (occurrence: None)
  Receive Date: 20091029
  Receipt Date: 20091016
  Transmission Date: 20100525
  Serious: Yes (Other)
  Sender: FDA-Public Use
  Company Number: US-PFIZER INC-2009285684

PATIENT
  Age: 47 Year

DRUGS (6)
  1. LYRICA [Suspect]
     Indication: NEUROPATHY PERIPHERAL
     Dosage: FREQUENCY: 3X/DAY,
     Dates: start: 20060101, end: 20090301
  2. SYNTHROID [Concomitant]
     Dosage: UNK
  3. XANAX [Concomitant]
     Dosage: UNK
  4. METFORMIN [Concomitant]
     Dosage: UNK
  5. INSULIN [Concomitant]
     Dosage: UNK
  6. ACETYLSALICYLIC ACID [Concomitant]
     Dosage: UNK

REACTIONS (7)
  - BALANCE DISORDER [None]
  - BLINDNESS [None]
  - BREAKTHROUGH PAIN [None]
  - CARDIAC DISORDER [None]
  - CATARACT [None]
  - IMPAIRED WORK ABILITY [None]
  - OSTEOMYELITIS [None]
